FAERS Safety Report 7466117-2 (Version None)
Quarter: 2011Q2

REPORT INFORMATION
  Report Type: 
  Country: None (occurrence: None)
  Receive Date: 20110505
  Receipt Date: 20110505
  Transmission Date: 20111010
  Serious: No
  Sender: FDA-Public Use
  Company Number: None

PATIENT
  Sex: Female
  Weight: 48.1 kg

DRUGS (2)
  1. PHENERGAN [Suspect]
     Dosage: 25 MG IV
     Route: 042
  2. MORPHINE SULFATE [Suspect]
     Dosage: 20 MG BUCCAL
     Route: 002

REACTIONS (1)
  - FALL [None]
